FAERS Safety Report 5339326-6 (Version None)
Quarter: 2007Q2

REPORT INFORMATION
  Report Type: 
  Country: None (occurrence: None)
  Receive Date: 20070525
  Receipt Date: 20070509
  Transmission Date: 20071010
  Serious: Yes (Death)
  Sender: FDA-Public Use
  Company Number: DSA_29923_2007

PATIENT
  Age: 60 Year
  Sex: Male

DRUGS (2)
  1. ENALAPRIL MALEATE [Suspect]
     Indication: HYPERTENSION
     Dosage: (10 MG QD ORAL)
     Route: 048
     Dates: start: 20021022, end: 20040714
  2. SIMVASTATIN [Suspect]
     Indication: HYPERLIPIDAEMIA
     Dosage: (20 MG QD ORAL)
     Route: 048
     Dates: start: 20010126, end: 20040201

REACTIONS (1)
  - VENTRICULAR FIBRILLATION [None]
